FAERS Safety Report 4661280-0 (Version None)
Quarter: 2005Q2

REPORT INFORMATION
  Report Type: 
  Country: None (occurrence: None)
  Receive Date: 20050513
  Receipt Date: 20050426
  Transmission Date: 20051028
  Serious: Yes (Life-Threatening, Hospitalization, Other)
  Sender: FDA-Public Use
  Company Number: CA-NOVOPROD-243864

PATIENT
  Age: 66 Year
  Sex: Female
  Weight: 94 kg

DRUGS (2)
  1. NIASTASE [Suspect]
     Indication: OFF LABEL USE
     Dosage: 4.8 MG, SINGLE
     Route: 042
     Dates: start: 20050319
  2. NIASTASE [Suspect]
     Dosage: 4.8 MG, SINGLE
     Route: 042
     Dates: start: 20050319

REACTIONS (3)
  - FUNGAL INFECTION [None]
  - MULTI-ORGAN FAILURE [None]
  - PORTAL VEIN THROMBOSIS [None]
